FAERS Safety Report 7491070-5 (Version None)
Quarter: 2011Q2

REPORT INFORMATION
  Report Type: 
  Country: None (occurrence: None)
  Receive Date: 20110519
  Receipt Date: 20110511
  Transmission Date: 20111010
  Serious: Yes (Hospitalization, Other)
  Sender: FDA-Public Use
  Company Number: JP-ROCHE-759348

PATIENT
  Sex: Male
  Weight: 58 kg

DRUGS (8)
  1. FLUOROURACIL [Concomitant]
     Route: 041
  2. OXALIPLATIN [Suspect]
     Indication: RECTAL CANCER METASTATIC
     Route: 041
  3. GRANISETRON HCL [Concomitant]
     Route: 065
  4. AVASTIN [Suspect]
     Indication: RECTAL CANCER METASTATIC
     Route: 041
     Dates: start: 20100325, end: 20110104
  5. FLUOROURACIL [Concomitant]
     Route: 041
  6. DEXART [Suspect]
     Indication: PROPHYLAXIS
     Route: 065
  7. CAMPTOSAR [Concomitant]
     Route: 041
  8. LEVOFOLINATE [Concomitant]
     Route: 041

REACTIONS (4)
  - GASTROINTESTINAL PERFORATION [None]
  - INTESTINAL OBSTRUCTION [None]
  - PERITONITIS [None]
  - DRUG HYPERSENSITIVITY [None]
